FAERS Safety Report 9022462 (Version 1)
Quarter: 2013Q1

REPORT INFORMATION
  Report Type: Spontaneous
  Country: US (occurrence: US)
  Receive Date: 20130118
  Receipt Date: 20130118
  Transmission Date: 20140127
  Serious: No
  Sender: FDA-Public Use
  Company Number: US-PFIZER INC-2013018187

PATIENT
  Age: 37 Year
  Sex: Female
  Weight: 45.35 kg

DRUGS (3)
  1. SOLU-MEDROL [Suspect]
     Dosage: UNK
     Dates: start: 20121210
  2. AMPYRA [Suspect]
     Indication: GAIT DISTURBANCE
     Dosage: 10 MG, 2X/DAY (Q 12 HRS)
     Route: 048
     Dates: start: 201203
  3. REBIF [Concomitant]
     Dosage: UNK, THREE TIMES PER WEEK

REACTIONS (1)
  - Insomnia [Unknown]
